FAERS Safety Report 4974112-8 (Version None)
Quarter: 2006Q2

REPORT INFORMATION
  Report Type: 
  Country: None (occurrence: None)
  Receive Date: 20060417
  Receipt Date: 20060117
  Transmission Date: 20061013
  Serious: Yes (Hospitalization, Disabling)
  Sender: FDA-Public Use
  Company Number: US-MERCK-0601USA02454

PATIENT
  Age: 48 Year
  Sex: Male
  Weight: 92 kg

DRUGS (5)
  1. VIOXX [Suspect]
     Indication: ARTHRITIS
     Route: 048
     Dates: start: 20000223, end: 20041006
  2. FUROSEMIDE [Concomitant]
     Indication: RENAL DISORDER
     Route: 065
     Dates: start: 20000101
  3. FUROSEMIDE [Concomitant]
     Indication: RENAL FAILURE
     Route: 065
     Dates: start: 20000101
  4. ASPIRIN [Concomitant]
     Route: 065
     Dates: start: 20020906
  5. PRAVACHOL [Concomitant]
     Route: 065
     Dates: start: 20020903, end: 20021116

REACTIONS (9)
  - CHEST PAIN [None]
  - DYSPEPSIA [None]
  - DYSPNOEA [None]
  - GASTROOESOPHAGEAL REFLUX DISEASE [None]
  - GOUT [None]
  - HYPERTENSION [None]
  - MYOCARDIAL INFARCTION [None]
  - NEPHROLITHIASIS [None]
  - RENAL DISORDER [None]
